FAERS Safety Report 8525723-4 (Version None)
Quarter: 2012Q3

REPORT INFORMATION
  Report Type: 
  Country: None (occurrence: None)
  Receive Date: 20120720
  Receipt Date: 20120711
  Transmission Date: 20120928
  Serious: Yes (Other)
  Sender: FDA-Public Use
  Company Number: US-009507513-1204USA00055

PATIENT

DRUGS (5)
  1. HUMULIN R [Suspect]
     Indication: TYPE 2 DIABETES MELLITUS
     Route: 058
  2. JANUVIA [Suspect]
     Indication: TYPE 2 DIABETES MELLITUS
     Dosage: UNK UNK, ONCE
     Route: 048
  3. LANTUS [Suspect]
     Indication: TYPE 2 DIABETES MELLITUS
     Dosage: 35 IU, UNK
     Route: 058
  4. HUMULIN N [Suspect]
     Indication: TYPE 2 DIABETES MELLITUS
     Route: 058
  5. JANUVIA [Suspect]
     Dosage: 2 DF, TID

REACTIONS (8)
  - BLOOD GLUCOSE DECREASED [None]
  - FEAR [None]
  - LOSS OF CONSCIOUSNESS [None]
  - CARDIAC DISORDER [None]
  - WEIGHT DECREASED [None]
  - MEDICAL DEVICE COMPLICATION [None]
  - OVERDOSE [None]
  - DIABETES MELLITUS [None]
